FAERS Safety Report 14555448 (Version 1)
Quarter: 2018Q1

REPORT INFORMATION
  Report Type: Spontaneous
  Country: US (occurrence: US)
  Receive Date: 20180220
  Receipt Date: 20180220
  Transmission Date: 20180509
  Serious: No
  Sender: FDA-Public Use
  Company Number: US-BIOGEN-2017BI00461188

PATIENT
  Age: 60 Year
  Sex: Female

DRUGS (1)
  1. ZINBRYTA [Suspect]
     Active Substance: DACLIZUMAB
     Indication: MULTIPLE SCLEROSIS
     Route: 058
     Dates: start: 20170718, end: 20170718

REACTIONS (11)
  - Multiple sclerosis relapse [Not Recovered/Not Resolved]
  - Dysphagia [Recovered/Resolved]
  - Tremor [Unknown]
  - Motor dysfunction [Unknown]
  - Coordination abnormal [Unknown]
  - Fatigue [Recovered/Resolved]
  - Musculoskeletal disorder [Recovered/Resolved]
  - Visual impairment [Not Recovered/Not Resolved]
  - Headache [Not Recovered/Not Resolved]
  - Loss of consciousness [Recovered/Resolved]
  - Bronchitis [Not Recovered/Not Resolved]

NARRATIVE: CASE EVENT DATE: 20170915
